FAERS Safety Report 4633436-4 (Version None)
Quarter: 2005Q2

REPORT INFORMATION
  Report Type: 
  Country: None (occurrence: None)
  Receive Date: 20050408
  Receipt Date: 20040315
  Transmission Date: 20051028
  Serious: Yes (Other)
  Sender: FDA-Public Use
  Company Number: 7629

PATIENT
  Age: 82 Year
  Sex: Female

DRUGS (6)
  1. PAMIDRONATE DISODIUM [Suspect]
     Indication: METASTATIC NEOPLASM
     Dosage: 90 MG OTH SC
     Route: 058
     Dates: start: 20030116
  2. ZESTRIL [Concomitant]
  3. THIAZIDE [Concomitant]
  4. LASIX [Concomitant]
  5. MICRO-K [Concomitant]
  6. PEROXIDINE [Concomitant]

REACTIONS (2)
  - EXTRAVASATION [None]
  - OEDEMA PERIPHERAL [None]
